FAERS Safety Report 8156799-4 (Version None)
Quarter: 2012Q1

REPORT INFORMATION
  Report Type: 
  Country: None (occurrence: None)
  Receive Date: 20120222
  Receipt Date: 20120213
  Transmission Date: 20120608
  Serious: Yes (Other)
  Sender: FDA-Public Use
  Company Number: CA-JNJFOC-20120207557

PATIENT
  Sex: Female
  Weight: 119 kg

DRUGS (7)
  1. PANTOPRAZOLE [Concomitant]
     Route: 065
  2. REMICADE [Suspect]
     Indication: CROHN'S DISEASE
     Route: 042
  3. BISOPROLOL [Concomitant]
     Route: 065
  4. LEVEMIR [Concomitant]
     Dosage: 98 UNITS
     Route: 065
  5. ATACAND HCT [Concomitant]
     Dosage: DOSE:32MG/25MG
     Route: 065
  6. NOVO RAPID [Concomitant]
     Dosage: DOSE:54 UNITS
     Route: 065
  7. AMLODIPINE BESYLATE [Concomitant]
     Route: 065

REACTIONS (1)
  - PYODERMA GANGRENOSUM [None]
